FAERS Safety Report 4446303-6 (Version None)
Quarter: 2004Q3

REPORT INFORMATION
  Report Type: 
  Country: None (occurrence: None)
  Receive Date: 20040802
  Receipt Date: 20040623
  Transmission Date: 20050211
  Serious: No
  Sender: FDA-Public Use
  Company Number: 2004-117188-NL

PATIENT
  Age: 39 Year
  Sex: Female
  Weight: 68.2 kg

DRUGS (7)
  1. NUVARING [Suspect]
     Indication: CONTRACEPTION
     Dosage: DF DAILY VAGINAL
     Route: 067
     Dates: start: 20040525, end: 20040601
  2. ZOLOFT [Concomitant]
  3. WELLBUTRIN [Concomitant]
  4. MULTI-VITAMIN W/IRON [Concomitant]
  5. VITAMIN B COMPLEX CAP [Concomitant]
  6. OMEGA-3 FATTY ACID [Concomitant]
  7. UNSPECIFIED HERBAL PRODUCT FOR MEMORY [Concomitant]

REACTIONS (5)
  - BREAST TENDERNESS [None]
  - DIZZINESS [None]
  - IRRITABILITY [None]
  - METRORRHAGIA [None]
  - NAUSEA [None]
